FAERS Safety Report 24922545 (Version 3)
Quarter: 2025Q4

REPORT INFORMATION
  Report Type: Report from Study
  Country: US (occurrence: US)
  Receive Date: 20250204
  Receipt Date: 20251028
  Transmission Date: 20260117
  Serious: No
  Sender: MERCK SHARP & DOHME LLC
  Company Number: US-009507513-2502USA000590

PATIENT
  Sex: Female
  Weight: 27.216 kg

DRUGS (23)
  1. WINREVAIR [Suspect]
     Active Substance: SOTATERCEPT-CSRK
     Dosage: DOSE DESCRIPTION : UNK
  2. WINREVAIR [Suspect]
     Active Substance: SOTATERCEPT-CSRK
  3. WINREVAIR [Suspect]
     Active Substance: SOTATERCEPT-CSRK
  4. WINREVAIR [Suspect]
     Active Substance: SOTATERCEPT-CSRK
  5. WINREVAIR [Suspect]
     Active Substance: SOTATERCEPT-CSRK
     Dosage: EVERY 21 DAYS, STRENGTH: KIT 45 MG
  6. WINREVAIR [Suspect]
     Active Substance: SOTATERCEPT-CSRK
  7. WINREVAIR [Suspect]
     Active Substance: SOTATERCEPT-CSRK
  8. WINREVAIR [Suspect]
     Active Substance: SOTATERCEPT-CSRK
  9. TREPROSTINIL [Suspect]
     Active Substance: TREPROSTINIL
     Indication: Pulmonary arterial hypertension
     Dosage: 86 NG/KG/MIN - INTRAVENOUS, FREQUENCY: CONTINOUS
     Route: 042
     Dates: start: 20221228
  10. TADALAFIL [Concomitant]
     Active Substance: TADALAFIL
  11. IBUPROFEN [Concomitant]
     Active Substance: IBUPROFEN
  12. CLONIDINE HYDROCHLORIDE [Concomitant]
     Active Substance: CLONIDINE HYDROCHLORIDE
  13. ZYRTEC-D [Concomitant]
     Active Substance: CETIRIZINE HYDROCHLORIDE\PSEUDOEPHEDRINE HYDROCHLORIDE
  14. LASIX [Concomitant]
     Active Substance: FUROSEMIDE
  15. LEVALBUTEROL TARTRATE [Concomitant]
     Active Substance: LEVALBUTEROL TARTRATE
  16. MULTIVITAMINS TABLET [Concomitant]
  17. BENADRYL ALLERGY DECONGESTANT [Concomitant]
  18. ACETAMINOPHEN [Concomitant]
     Active Substance: ACETAMINOPHEN
  19. COLD HEAD CONGESTION CAPLET [Concomitant]
  20. CETIRIZINE HCL [Concomitant]
     Active Substance: CETIRIZINE HYDROCHLORIDE
  21. AMBRISENTAN [Concomitant]
     Active Substance: AMBRISENTAN
  22. MELATONIN [Concomitant]
     Active Substance: MELATONIN
  23. REMODULIN [Concomitant]
     Active Substance: TREPROSTINIL

REACTIONS (2)
  - Adverse event [Unknown]
  - Product use issue [Unknown]
